FAERS Safety Report 19585582 (Version 2)
Quarter: 2021Q3

REPORT INFORMATION
  Report Type: Spontaneous
  Country: DE (occurrence: DE)
  Receive Date: 20210721
  Receipt Date: 20210803
  Transmission Date: 20211014
  Serious: Yes (Hospitalization, Other)
  Sender: FDA-Public Use
  Company Number: DE-ALKEM LABORATORIES LIMITED-DE-ALKEM-2021-04412

PATIENT
  Age: 78 Year
  Sex: Male

DRUGS (5)
  1. ASS 100 [Concomitant]
     Active Substance: ASPIRIN
     Indication: MYOCARDIAL INFARCTION
     Dosage: UNK
     Route: 065
  2. ASS 100 [Concomitant]
     Active Substance: ASPIRIN
     Indication: ANTICOAGULANT THERAPY
  3. CANDESARTAN. [Concomitant]
     Active Substance: CANDESARTAN
     Indication: BLOOD PRESSURE INCREASED
     Dosage: 16 MILLIGRAM, QD
     Route: 065
  4. ASS 100 [Concomitant]
     Active Substance: ASPIRIN
     Indication: CEREBROVASCULAR ACCIDENT
  5. EZETIMIBE. [Suspect]
     Active Substance: EZETIMIBE
     Indication: BLOOD CHOLESTEROL INCREASED
     Dosage: 10 MILLIGRAM
     Route: 065
     Dates: start: 20190729, end: 202101

REACTIONS (5)
  - Pancreatic carcinoma [Unknown]
  - Abdominal pain [Unknown]
  - Lipase increased [Recovered/Resolved]
  - Abdominal adhesions [Unknown]
  - Abdominal infection [Unknown]

NARRATIVE: CASE EVENT DATE: 202011
